FAERS Safety Report 8924965 (Version 1)
Quarter: 2012Q4

REPORT INFORMATION
  Report Type: 
  Country: US (occurrence: US)
  Receive Date: 20121126
  Receipt Date: 20121126
  Transmission Date: 20130627
  Serious: Yes (Death, Other)
  Sender: FDA-Public Use
  Company Number: US-RANBAXY-2012US-56087

PATIENT
  Age: 30 Year
  Sex: Male

DRUGS (4)
  1. CARBIDOPA AND LEVODOPA [Suspect]
     Indication: PRODUCT USED FOR UNKNOWN INDICATION
     Dosage: UNK
     Route: 065
  2. CARBIDOPA AND LEVODOPA [Suspect]
     Dosage: 100mg
     Route: 065
  3. RISPERIDONE [Suspect]
     Indication: CHOREA
     Dosage: 0.5mg
     Route: 065
  4. TETRABENAZINE [Suspect]
     Indication: PRODUCT USED FOR UNKNOWN INDICATION
     Dosage: 12.5 mg, bid
     Route: 065

REACTIONS (4)
  - Fall [Unknown]
  - Gait disturbance [Unknown]
  - Drug ineffective [Unknown]
  - Sedation [Unknown]
